FAERS Safety Report 18526792 (Version 2)
Quarter: 2020Q4

REPORT INFORMATION
  Report Type: Spontaneous
  Country: JP (occurrence: JP)
  Receive Date: 20201120
  Receipt Date: 20201125
  Transmission Date: 20210114
  Serious: Yes (Hospitalization, Other)
  Sender: FDA-Public Use
  Company Number: JP-GILEAD-2020-0504822

PATIENT
  Age: 8 Decade
  Sex: Male

DRUGS (3)
  1. VIREAD [Suspect]
     Active Substance: TENOFOVIR DISOPROXIL FUMARATE
     Indication: CHRONIC HEPATITIS B
     Dosage: 300 MG
     Route: 048
  2. ENTECAVIR. [Concomitant]
     Active Substance: ENTECAVIR
     Indication: CHRONIC HEPATITIS B
     Dosage: 1.0 MG, 1D
     Route: 065
  3. ENTECAVIR. [Concomitant]
     Active Substance: ENTECAVIR
     Dosage: 1.0 MG, 1D

REACTIONS (11)
  - Abdominal pain [Unknown]
  - Anuria [Recovered/Resolved]
  - Dehydration [Unknown]
  - Shock [Unknown]
  - Chronic kidney disease [Unknown]
  - Metabolic acidosis [Unknown]
  - Tubulointerstitial nephritis [Unknown]
  - Acute kidney injury [Unknown]
  - Renal tubular acidosis [Unknown]
  - Nephropathy toxic [Unknown]
  - Fanconi syndrome acquired [Unknown]

NARRATIVE: CASE EVENT DATE: 20200526
